FAERS Safety Report 19086659 (Version 1)
Quarter: 2021Q2

REPORT INFORMATION
  Report Type: Other
  Country: HK (occurrence: HK)
  Receive Date: 20210402
  Receipt Date: 20210402
  Transmission Date: 20210717
  Serious: Yes (Death, Other)
  Sender: FDA-Public Use
  Company Number: HK-ROCHE-2798737

PATIENT

DRUGS (8)
  1. PREDNISOLONE. [Suspect]
     Active Substance: PREDNISOLONE
     Indication: COVID-19
     Route: 065
  2. SULFAMETHOXAZOLE/TRIMETHOPRIM [Suspect]
     Active Substance: SULFAMETHOXAZOLE\TRIMETHOPRIM
     Indication: COVID-19
     Route: 065
  3. OSELTAMIVIR [Suspect]
     Active Substance: OSELTAMIVIR
     Indication: COVID-19
     Route: 065
  4. INTERFERON BETA?1B [Suspect]
     Active Substance: INTERFERON BETA-1B
     Indication: COVID-19
     Route: 065
  5. LOPINAVIR;RITONAVIR [Suspect]
     Active Substance: LOPINAVIR\RITONAVIR
     Indication: COVID-19
     Route: 065
  6. RIBAVIRIN. [Suspect]
     Active Substance: RIBAVIRIN
     Indication: COVID-19
     Route: 065
  7. HYDROCORTISONE. [Suspect]
     Active Substance: HYDROCORTISONE
     Indication: COVID-19
     Route: 065
  8. METHYLPREDNISOLONE. [Suspect]
     Active Substance: METHYLPREDNISOLONE
     Indication: COVID-19
     Route: 065

REACTIONS (12)
  - Hepatic encephalopathy [Unknown]
  - Hepatic failure [Unknown]
  - Blood alkaline phosphatase abnormal [Unknown]
  - Liver injury [Unknown]
  - International normalised ratio increased [Unknown]
  - Off label use [Unknown]
  - Hepatocellular carcinoma [Unknown]
  - Alanine aminotransferase increased [Unknown]
  - Blood bilirubin increased [Unknown]
  - Liver disorder [Fatal]
  - Ascites [Unknown]
  - Aspartate aminotransferase increased [Unknown]
